FAERS Safety Report 20545849 (Version 1)
Quarter: 2022Q1

REPORT INFORMATION
  Report Type: Spontaneous
  Country: GB (occurrence: GB)
  Receive Date: 20220303
  Receipt Date: 20220303
  Transmission Date: 20220423
  Serious: Yes (Hospitalization)
  Sender: FDA-Public Use
  Company Number: GB-MYLANLABS-2022M1015924

PATIENT
  Age: 8 Decade
  Sex: Male

DRUGS (19)
  1. BUMETANIDE [Suspect]
     Active Substance: BUMETANIDE
     Indication: Cardiac failure
     Dosage: 2 MILLIGRAM, BID
     Route: 065
  2. BUMETANIDE [Suspect]
     Active Substance: BUMETANIDE
     Indication: Hypertension
  3. BUMETANIDE [Suspect]
     Active Substance: BUMETANIDE
     Indication: Chronic kidney disease
  4. BUMETANIDE [Suspect]
     Active Substance: BUMETANIDE
     Indication: Cerebrovascular accident
  5. RAMIPRIL [Suspect]
     Active Substance: RAMIPRIL
     Indication: Cardiac failure
     Dosage: 2.5 MILLIGRAM, QD
     Route: 065
  6. RAMIPRIL [Suspect]
     Active Substance: RAMIPRIL
     Indication: Hypertension
  7. RAMIPRIL [Suspect]
     Active Substance: RAMIPRIL
     Indication: Chronic kidney disease
  8. RAMIPRIL [Suspect]
     Active Substance: RAMIPRIL
     Indication: Cerebrovascular accident
  9. SPIRONOLACTONE [Suspect]
     Active Substance: SPIRONOLACTONE
     Indication: Cardiac failure
     Dosage: 25 MILLIGRAM, QD
     Route: 065
  10. SPIRONOLACTONE [Suspect]
     Active Substance: SPIRONOLACTONE
     Indication: Hypertension
  11. SPIRONOLACTONE [Suspect]
     Active Substance: SPIRONOLACTONE
     Indication: Chronic kidney disease
  12. SPIRONOLACTONE [Suspect]
     Active Substance: SPIRONOLACTONE
     Indication: Cerebrovascular accident
  13. AMLODIPINE [Concomitant]
     Active Substance: AMLODIPINE BESYLATE
     Indication: Hypertension
     Route: 065
  14. ALLOPURINOL [Concomitant]
     Active Substance: ALLOPURINOL
     Indication: Chronic kidney disease
     Dosage: 100 MILLIGRAM, QD
     Route: 065
  15. ATORVASTATIN [Concomitant]
     Active Substance: ATORVASTATIN
     Indication: Cerebrovascular accident
     Dosage: 20 MILLIGRAM, QD
     Route: 065
  16. CARVEDILOL [Concomitant]
     Active Substance: CARVEDILOL
     Indication: Cardiac failure
     Dosage: 6.25 MILLIGRAM, BID
     Route: 065
  17. CARVEDILOL [Concomitant]
     Active Substance: CARVEDILOL
     Indication: Hypertension
  18. QUININE [Concomitant]
     Active Substance: QUININE
     Indication: Atrial fibrillation
     Dosage: 200 MILLIGRAM, PM, EVERY NIGHT
     Route: 065
  19. WARFARIN [Concomitant]
     Active Substance: WARFARIN
     Indication: Cerebrovascular accident
     Dosage: UNK
     Route: 065

REACTIONS (4)
  - Hyperkalaemia [Recovered/Resolved]
  - Hyponatraemia [Recovered/Resolved]
  - BRASH syndrome [Recovered/Resolved]
  - Metabolic acidosis [Recovered/Resolved]
